FAERS Safety Report 5918525-6 (Version None)
Quarter: 2008Q4

REPORT INFORMATION
  Report Type: 
  Country: None (occurrence: None)
  Receive Date: 20081014
  Receipt Date: 20081014
  Transmission Date: 20090506
  Serious: Yes (Life-Threatening, Hospitalization)
  Sender: FDA-Public Use
  Company Number: None

PATIENT
  Age: 44 Year
  Sex: Male

DRUGS (2)
  1. DAPSONE [Suspect]
     Indication: ANTIFUNGAL PROPHYLAXIS
  2. PRIMAQUINE [Suspect]

REACTIONS (1)
  - METHAEMOGLOBINAEMIA [None]
